FAERS Safety Report 24818540 (Version 1)
Quarter: 2025Q1

REPORT INFORMATION
  Report Type: Spontaneous
  Country: US (occurrence: None)
  Receive Date: 20250107
  Receipt Date: 20250107
  Transmission Date: 20250408
  Serious: Yes (Disabling)
  Sender: FDA-CTU
  Company Number: None

PATIENT
  Sex: Female

DRUGS (1)
  1. ALENDRONATE [Suspect]
     Active Substance: ALENDRONATE SODIUM
     Indication: Osteoporosis
     Route: 048
     Dates: start: 20230101, end: 20230601

REACTIONS (3)
  - Visual impairment [None]
  - Deafness [None]
  - Musculoskeletal disorder [None]

NARRATIVE: CASE EVENT DATE: 20230101
